FAERS Safety Report 14404862 (Version 2)
Quarter: 2018Q2

REPORT INFORMATION
  Report Type: Spontaneous
  Country: US (occurrence: US)
  Receive Date: 20180118
  Receipt Date: 20180430
  Transmission Date: 20180711
  Serious: Yes (Hospitalization, Other)
  Sender: FDA-Public Use
  Company Number: US-BRISTOL-MYERS SQUIBB COMPANY-BMS-2018-002181

PATIENT
  Sex: Female

DRUGS (2)
  1. ORENCIA [Suspect]
     Active Substance: ABATACEPT
     Indication: ADVERSE EVENT
     Dosage: 750 MG, Q2WK
     Route: 042
     Dates: start: 20170711
  2. ORENCIA [Suspect]
     Active Substance: ABATACEPT
     Indication: SOMATIC DYSFUNCTION
     Dosage: 750 MG, QMO
     Route: 042

REACTIONS (2)
  - Hospitalisation [Unknown]
  - Product use in unapproved indication [Unknown]
